FAERS Safety Report 8268020-7 (Version None)
Quarter: 2012Q2

REPORT INFORMATION
  Report Type: 
  Country: None (occurrence: None)
  Receive Date: 20120409
  Receipt Date: 20120330
  Transmission Date: 20120825
  Serious: Yes (Hospitalization)
  Sender: FDA-Public Use
  Company Number: US-BAYER-2011-103502

PATIENT
  Sex: Female
  Weight: 77.143 kg

DRUGS (1)
  1. YAZ [Suspect]
     Dosage: 1 PILL, QD
     Dates: start: 20040101, end: 20080101

REACTIONS (2)
  - PAIN [None]
  - CHOLECYSTITIS [None]
